FAERS Safety Report 9234035 (Version 3)
Quarter: 2013Q4

REPORT INFORMATION
  Report Type: Spontaneous
  Country: US (occurrence: None)
  Receive Date: 20121031
  Receipt Date: 20131226
  Transmission Date: 20140711
  Serious: Yes (Other)
  Sender: FDA-Public Use
  Company Number: PHEH2012US016420

PATIENT
  Age: 27 Year
  Sex: Female
  Weight: 83.4 kg

DRUGS (4)
  1. GILENYA [Suspect]
     Indication: RELAPSING-REMITTING MULTIPLE SCLEROSIS
     Route: 048
     Dates: end: 201205
  2. AVONEX (INTERFERON BETA 1-A) [Concomitant]
  3. MEDROL (METHYLPREDNISOLONE) [Concomitant]
  4. PHENEGAN ^AVENTIS PHARMA^ (PROMETHAZINE HYDROCHLORIDE) [Concomitant]

REACTIONS (6)
  - Liver function test abnormal [None]
  - Rash [None]
  - Mass [None]
  - Nausea [None]
  - Blood pressure increased [None]
  - Scleral discolouration [None]
